FAERS Safety Report 22263862 (Version 2)
Quarter: 2024Q3

REPORT INFORMATION
  Report Type: Spontaneous
  Country: BR (occurrence: BR)
  Receive Date: 20230428
  Receipt Date: 20240909
  Transmission Date: 20241017
  Serious: Yes (Hospitalization, Other)
  Sender: CELLTRION
  Company Number: BR-CELLTRION INC.-2022BR022350

PATIENT

DRUGS (6)
  1. INFLIXIMAB [Suspect]
     Active Substance: INFLIXIMAB
     Indication: Colitis ulcerative
     Dosage: 4 AMPOULES EVERY 4 WEEKS
     Route: 042
     Dates: start: 20220829
  2. INFLIXIMAB [Suspect]
     Active Substance: INFLIXIMAB
     Dosage: 4 AMPOULES MONTHLY
     Route: 042
     Dates: start: 20220926
  3. INFLIXIMAB [Suspect]
     Active Substance: INFLIXIMAB
     Dosage: 13.7 MILLIGRAM PER MILLILITRE
     Dates: start: 20220926
  4. INFLIXIMAB [Suspect]
     Active Substance: INFLIXIMAB
     Dosage: 7 AMPOULES MONTHLY
  5. INFLIXIMAB [Suspect]
     Active Substance: INFLIXIMAB
     Dosage: 7 AMPOULES EVERY 4 WEEKS
     Route: 042
  6. AZATHIOPRINE [Concomitant]
     Active Substance: AZATHIOPRINE
     Indication: Colitis ulcerative
     Dosage: 50 MG AT 2 CAPSULE A DAY (DATE OF ADMINISTRATION: LESS THAN 1 YEAR)
     Route: 048

REACTIONS (9)
  - Colitis ulcerative [Unknown]
  - Gastrointestinal inflammation [Recovering/Resolving]
  - Dehydration [Recovering/Resolving]
  - Diarrhoea [Recovering/Resolving]
  - Asthenia [Recovering/Resolving]
  - Symptom recurrence [Unknown]
  - Drug ineffective [Unknown]
  - Inappropriate schedule of product administration [Unknown]
  - Intentional product use issue [Unknown]

NARRATIVE: CASE EVENT DATE: 20220829
